FAERS Safety Report 11791989 (Version 13)
Quarter: 2017Q1

REPORT INFORMATION
  Report Type: Spontaneous
  Country: US (occurrence: US)
  Receive Date: 20151201
  Receipt Date: 20170105
  Transmission Date: 20170428
  Serious: Yes (Hospitalization, Other)
  Sender: FDA-Public Use
  Company Number: US-PFIZER INC-2015405070

PATIENT
  Age: 71 Year
  Sex: Female
  Weight: 68 kg

DRUGS (11)
  1. SUTENT [Suspect]
     Active Substance: SUNITINIB MALATE
     Dosage: 37.5 MG, CYCLIC (DAYS 1-14 Q21 DAYS)
     Dates: start: 20151111, end: 201612
  2. SUTENT [Suspect]
     Active Substance: SUNITINIB MALATE
     Dosage: 50 MG ONCE DAILY, CYCLIC (DAY1-DAY14 PER 21 DAYS)
     Route: 048
     Dates: start: 20151111, end: 20151217
  3. SUTENT [Suspect]
     Active Substance: SUNITINIB MALATE
     Dosage: 37.5 MG, CYCLIC (DAYS 1-14 Q21 DAYS)
     Route: 048
     Dates: start: 20160107
  4. SUTENT [Suspect]
     Active Substance: SUNITINIB MALATE
     Dosage: 37.5 MG, CYCLIC (D1-D14 Q21D)
     Route: 048
     Dates: start: 20151111
  5. SUTENT [Suspect]
     Active Substance: SUNITINIB MALATE
     Dosage: 37.5 MG, CYCLIC (1 CAP D1-D14 Q 21D)
     Route: 048
     Dates: start: 20151111
  6. SUTENT [Suspect]
     Active Substance: SUNITINIB MALATE
     Dosage: 37.5 MG, CYCLIC (DAYS 1-14 Q21 DAYS )
     Route: 048
     Dates: start: 20151111
  7. SUTENT [Suspect]
     Active Substance: SUNITINIB MALATE
     Dosage: 37.5 MG, CYCLIC(DAY 1-14 Q 21 DAYS)
     Route: 048
     Dates: start: 20151111
  8. SUTENT [Suspect]
     Active Substance: SUNITINIB MALATE
     Indication: GASTROINTESTINAL STROMAL TUMOUR
     Dosage: 37.5 MG, DAILY
     Route: 048
     Dates: start: 201510
  9. SUTENT [Suspect]
     Active Substance: SUNITINIB MALATE
     Dosage: 37.5 MG, CYCLIC (D1-D14 Q28D)
     Route: 048
     Dates: start: 20160107
  10. SUTENT [Suspect]
     Active Substance: SUNITINIB MALATE
     Dosage: 37.5 MG, CYCLIC (DAYS 1-14 Q21 DAYS)
     Route: 048
     Dates: start: 20160107
  11. SUTENT [Suspect]
     Active Substance: SUNITINIB MALATE
     Dosage: 37.5 MG, UNK
     Dates: start: 20161126

REACTIONS (14)
  - Discomfort [Unknown]
  - Skin exfoliation [Not Recovered/Not Resolved]
  - Drug dose omission [Unknown]
  - Chest pain [Recovered/Resolved]
  - Weight decreased [Not Recovered/Not Resolved]
  - Blood count abnormal [Not Recovered/Not Resolved]
  - Gait disturbance [Unknown]
  - Peripheral swelling [Not Recovered/Not Resolved]
  - Abdominal discomfort [Unknown]
  - Pain in extremity [Recovered/Resolved]
  - Thrombosis [Unknown]
  - Nausea [Unknown]
  - Erythema [Recovered/Resolved]
  - Neoplasm progression [Unknown]

NARRATIVE: CASE EVENT DATE: 2015
